FAERS Safety Report 6001495-2 (Version None)
Quarter: 2008Q4

REPORT INFORMATION
  Report Type: 
  Country: None (occurrence: None)
  Receive Date: 20081215
  Receipt Date: 20071213
  Transmission Date: 20090506
  Serious: No
  Sender: FDA-Public Use
  Company Number: US-AMGEN-KDL251435

PATIENT
  Sex: Female
  Weight: 102.2 kg

DRUGS (2)
  1. ENBREL [Suspect]
     Indication: PSORIASIS
     Route: 058
     Dates: start: 20050217, end: 20071030
  2. VOLTAREN [Suspect]
     Dates: start: 20071010, end: 20071031

REACTIONS (1)
  - LIVER FUNCTION TEST ABNORMAL [None]
